APPROVED DRUG PRODUCT: METHYLPREDNISOLONE SODIUM SUCCINATE
Active Ingredient: METHYLPREDNISOLONE SODIUM SUCCINATE
Strength: EQ 40MG BASE/VIAL
Dosage Form/Route: INJECTABLE;INJECTION
Application: A207549 | Product #001 | TE Code: AP
Applicant: AMNEAL EU LTD
Approved: Nov 9, 2016 | RLD: No | RS: No | Type: RX